FAERS Safety Report 9548435 (Version 1)
Quarter: 2013Q2

REPORT INFORMATION
  Report Type: Spontaneous
  Country: US (occurrence: None)
  Receive Date: 20130627
  Receipt Date: 20130627
  Transmission Date: 20140414
  Serious: No
  Sender: FDA-Public Use
  Company Number: 1000043185

PATIENT
  Age: 64 Year
  Sex: Female

DRUGS (2)
  1. LINZESS [Suspect]
     Indication: IRRITABLE BOWEL SYNDROME
     Route: 048
     Dates: start: 20130303
  2. VITAMINS NOS (VITAMINS NOS) (VITAMINS NOS) [Concomitant]

REACTIONS (2)
  - Constipation [None]
  - Drug ineffective [None]
